FAERS Safety Report 6279481-7 (Version None)
Quarter: 2009Q3

REPORT INFORMATION
  Report Type: 
  Country: None (occurrence: None)
  Receive Date: 20090723
  Receipt Date: 20090713
  Transmission Date: 20100115
  Serious: Yes (Hospitalization)
  Sender: FDA-Public Use
  Company Number: HK-PFIZER INC-2009242233

PATIENT
  Age: 26 Year

DRUGS (2)
  1. ZELDOX [Suspect]
     Indication: BIPOLAR DISORDER
     Route: 048
     Dates: start: 20090612, end: 20090614
  2. FLUVOXAMINE MALEATE [Suspect]
     Indication: BIPOLAR DISORDER
     Route: 048
     Dates: start: 20090612, end: 20090614

REACTIONS (1)
  - OEDEMA [None]
